FAERS Safety Report 4786175-3 (Version None)
Quarter: 2005Q3

REPORT INFORMATION
  Report Type: 
  Country: None (occurrence: None)
  Receive Date: 20050930
  Receipt Date: 20050930
  Transmission Date: 20060218
  Serious: Yes (Life-Threatening)
  Sender: FDA-Public Use
  Company Number: None

PATIENT
  Age: 84 Year
  Sex: Male
  Weight: 135.5 kg

DRUGS (16)
  1. CARBOPLATIN [Suspect]
     Indication: BLADDER CANCER
     Dosage: 100 MG IV Q 3 WKS (200 MG IV ON 7/19)
     Route: 042
     Dates: start: 20050407
  2. CARBOPLATIN [Suspect]
     Indication: BLADDER CANCER
     Dosage: 100 MG IV Q 3 WKS (200 MG IV ON 7/19)
     Route: 042
     Dates: start: 20050429
  3. CARBOPLATIN [Suspect]
     Indication: BLADDER CANCER
     Dosage: 100 MG IV Q 3 WKS (200 MG IV ON 7/19)
     Route: 042
     Dates: start: 20050520
  4. CARBOPLATIN [Suspect]
     Indication: BLADDER CANCER
     Dosage: 100 MG IV Q 3 WKS (200 MG IV ON 7/19)
     Route: 042
     Dates: start: 20050610
  5. CARBOPLATIN [Suspect]
     Indication: BLADDER CANCER
     Dosage: 100 MG IV Q 3 WKS (200 MG IV ON 7/19)
     Route: 042
     Dates: start: 20050701
  6. CARBOPLATIN [Suspect]
     Indication: BLADDER CANCER
     Dosage: 100 MG IV Q 3 WKS (200 MG IV ON 7/19)
     Route: 042
     Dates: start: 20050809
  7. CARBOPLATIN [Suspect]
     Indication: BLADDER CANCER
     Dosage: 100 MG IV Q 3 WKS (200 MG IV ON 7/19)
     Route: 042
     Dates: start: 20050906
  8. CARBOPLATIN [Suspect]
  9. LEVOTHYROXINE [Concomitant]
  10. LASIX [Concomitant]
  11. SPIRONOLACTONE [Concomitant]
  12. MAGOX [Concomitant]
  13. METOPROLOL [Concomitant]
  14. ARANESP [Concomitant]
  15. NEUPOGEN [Concomitant]
  16. TAXOL [Concomitant]

REACTIONS (5)
  - HYPOXIA [None]
  - LOSS OF CONSCIOUSNESS [None]
  - MITRAL VALVE INCOMPETENCE [None]
  - PULMONARY HYPERTENSION [None]
  - TRICUSPID VALVE INCOMPETENCE [None]
